FAERS Safety Report 6507860-9 (Version None)
Quarter: 2009Q4

REPORT INFORMATION
  Report Type: 
  Country: None (occurrence: None)
  Receive Date: 20091221
  Receipt Date: 20091215
  Transmission Date: 20100525
  Serious: Yes (Other)
  Sender: FDA-Public Use
  Company Number: A0835194A

PATIENT
  Age: 63 Year
  Sex: Male

DRUGS (3)
  1. AVODART [Suspect]
     Indication: BENIGN PROSTATIC HYPERPLASIA
     Dosage: .5MG PER DAY
     Route: 048
     Dates: start: 20080101
  2. VITAMINS [Concomitant]
  3. HERBS [Concomitant]

REACTIONS (3)
  - MUSCLE ATROPHY [None]
  - WEIGHT DECREASED [None]
  - WEIGHT GAIN POOR [None]
